FAERS Safety Report 5005458-5 (Version None)
Quarter: 2006Q2

REPORT INFORMATION
  Report Type: 
  Country: None (occurrence: None)
  Receive Date: 20060518
  Receipt Date: 20050823
  Transmission Date: 20061013
  Serious: Yes (Disabling)
  Sender: FDA-Public Use
  Company Number: US-MERCK-0508USA03907

PATIENT
  Sex: Male
  Weight: 125 kg

DRUGS (3)
  1. VIOXX [Suspect]
     Indication: ARTHRITIS
     Route: 048
     Dates: start: 19990101, end: 20040901
  2. TYLENOL (CAPLET) [Concomitant]
     Route: 065
  3. ADVIL [Concomitant]
     Route: 065

REACTIONS (1)
  - CARDIAC DISORDER [None]
